FAERS Safety Report 7297744-3 (Version None)
Quarter: 2011Q1

REPORT INFORMATION
  Report Type: 
  Country: None (occurrence: None)
  Receive Date: 20110214
  Receipt Date: 20110214
  Transmission Date: 20110831
  Serious: Yes (Death)
  Sender: FDA-Public Use
  Company Number: None

PATIENT
  Age: 44 Year
  Sex: Female
  Weight: 38.2 kg

DRUGS (8)
  1. TEMSIROLIMUS [Suspect]
     Indication: SARCOMA
     Dosage: 20MG WEEKLY X 3 IV DRIP
     Route: 041
     Dates: start: 20101206, end: 20110118
  2. MORPHINE [Concomitant]
  3. LORAZEPAM [Concomitant]
  4. SENNA [Concomitant]
  5. IRINOTECAN HYDROCHLORIDE [Suspect]
     Indication: SARCOMA
     Dosage: 80MG/M2 WEEKLY X 3 IV DRIP
     Route: 041
     Dates: start: 20101206, end: 20110118
  6. DIAZEPAM [Concomitant]
  7. PAXIL [Concomitant]
  8. COMPAZINE [Concomitant]

REACTIONS (2)
  - NEOPLASM MALIGNANT [None]
  - SARCOMA METASTATIC [None]
